FAERS Safety Report 4621452-8 (Version None)
Quarter: 2005Q1

REPORT INFORMATION
  Report Type: 
  Country: None (occurrence: None)
  Receive Date: 20050317
  Receipt Date: 20050104
  Transmission Date: 20050727
  Serious: Yes (Other)
  Sender: FDA-Public Use
  Company Number: PHEH2004US12969

PATIENT
  Age: 42 Year
  Sex: Female

DRUGS (7)
  1. TRILEPTAL [Suspect]
     Indication: CONVULSION
     Dosage: 150 MG, QHS, UNK
     Dates: start: 20041119, end: 20041119
  2. TRILEPTAL [Suspect]
     Indication: CONVULSION
     Dosage: 150 MG, BID, UNK, 600 MG, BID
     Dates: start: 20041120, end: 20041127
  3. TRILEPTAL [Suspect]
     Indication: CONVULSION
     Dosage: 150 MG, BID, UNK, 600 MG, BID
     Dates: start: 20041128, end: 20041129
  4. KEPPA (LEVETIRACETAM) [Concomitant]
  5. LAMOTRIGINE [Concomitant]
  6. PHENYTOIN SODIUM [Concomitant]
  7. TRANXENE [Concomitant]

REACTIONS (4)
  - BRONCHITIS [None]
  - COUGH [None]
  - GENERALISED OEDEMA [None]
  - RASH GENERALISED [None]
